FAERS Safety Report 15802216 (Version 1)
Quarter: 2019Q1

REPORT INFORMATION
  Report Type: Spontaneous
  Country: US (occurrence: US)
  Receive Date: 20190107
  Receipt Date: 20190107
  Transmission Date: 20190417
  Serious: No
  Sender: FDA-Public Use
  Company Number: None

PATIENT

DRUGS (3)
  1. MORPHINE [Suspect]
     Active Substance: MORPHINE
  2. AUTOMATED DISPENSING MACHINE [Suspect]
     Active Substance: DEVICE
  3. FENTANYL. [Suspect]
     Active Substance: FENTANYL

REACTIONS (5)
  - Transcription medication error [None]
  - Inadequate analgesia [None]
  - Apnoea [None]
  - Unresponsive to stimuli [None]
  - Incorrect dose administered [None]
